FAERS Safety Report 23700157 (Version 2)
Quarter: 2024Q2

REPORT INFORMATION
  Report Type: Report from Study
  Country: US (occurrence: US)
  Receive Date: 20240403
  Receipt Date: 20240618
  Transmission Date: 20240715
  Serious: No
  Sender: FDA-Public Use
  Company Number: US-DECIPHERA PHARMACEUTICALS LLC-2024US000234

PATIENT
  Age: 61 Year
  Sex: Male

DRUGS (1)
  1. QINLOCK [Suspect]
     Active Substance: RIPRETINIB
     Indication: Gastrointestinal stromal tumour
     Dosage: 150 MILLIGRAM, QD (3 TABLETS OF 50 MILLIGRAM))
     Route: 048
     Dates: start: 20240212, end: 20240524

REACTIONS (6)
  - Hypersomnia [Unknown]
  - Scar [Unknown]
  - Productive cough [Unknown]
  - Peripheral coldness [Unknown]
  - Hypertension [Unknown]
  - Nausea [Unknown]
